FAERS Safety Report 9407347 (Version 1)
Quarter: 2013Q3

REPORT INFORMATION
  Report Type: Report from Study
  Country: CA (occurrence: CA)
  Receive Date: 20130718
  Receipt Date: 20130718
  Transmission Date: 20140515
  Serious: Yes (Other)
  Sender: FDA-Public Use
  Company Number: CA-JNJFOC-20130706760

PATIENT
  Age: 38 Year
  Sex: Female
  Weight: 92.7 kg

DRUGS (5)
  1. REMICADE [Suspect]
     Indication: COLITIS ULCERATIVE
     Route: 042
     Dates: start: 20130527
  2. IMURAN [Concomitant]
     Route: 065
  3. ASACOL [Concomitant]
     Route: 065
  4. SALOFALK [Concomitant]
     Route: 065
  5. SYNTHROID [Concomitant]
     Route: 065

REACTIONS (5)
  - Self-injurious ideation [Recovered/Resolved]
  - Influenza like illness [Recovered/Resolved]
  - Rectal haemorrhage [Recovered/Resolved]
  - Flushing [Recovered/Resolved]
  - Oral pruritus [Recovered/Resolved]
